FAERS Safety Report 7922801-5 (Version None)
Quarter: 2011Q4

REPORT INFORMATION
  Report Type: 
  Country: None (occurrence: None)
  Receive Date: 20111117
  Receipt Date: 20110125
  Transmission Date: 20120403
  Serious: No
  Sender: FDA-Public Use
  Company Number: US-AMGEN-USASP2011004552

PATIENT
  Age: 60 Year
  Sex: Male

DRUGS (1)
  1. ENBREL [Suspect]
     Indication: RHEUMATOID ARTHRITIS
     Dates: start: 20070607

REACTIONS (5)
  - ERYTHEMA [None]
  - PAIN IN EXTREMITY [None]
  - LOCAL SWELLING [None]
  - TENDERNESS [None]
  - INFECTION [None]
